FAERS Safety Report 4421964-6 (Version None)
Quarter: 2004Q3

REPORT INFORMATION
  Report Type: 
  Country: None (occurrence: None)
  Receive Date: 20040809
  Receipt Date: 20040809
  Transmission Date: 20050211
  Serious: No
  Sender: FDA-Public Use
  Company Number: None

PATIENT
  Sex: Female
  Weight: 170 kg

DRUGS (1)
  1. DEFEROXAMINE 2 GM -HOSPIRA [Suspect]
     Indication: MYELODYSPLASTIC SYNDROME
     Dosage: 2 GM QD SQ OVER 10 HRS
     Route: 058
     Dates: start: 20040604, end: 20040714

REACTIONS (3)
  - INFUSION SITE PAIN [None]
  - INFUSION SITE SWELLING [None]
  - INJECTION SITE URTICARIA [None]
